FAERS Safety Report 25335584 (Version 1)
Quarter: 2025Q2

REPORT INFORMATION
  Report Type: Report from Study
  Country: US (occurrence: US)
  Receive Date: 20250520
  Receipt Date: 20250520
  Transmission Date: 20250717
  Serious: Yes (Other)
  Sender: MYLAN
  Company Number: US-MYLANLABS-2025M1041634

PATIENT
  Age: 20 Year
  Sex: Female

DRUGS (12)
  1. AMNESTEEM [Suspect]
     Active Substance: ISOTRETINOIN
     Indication: Product used for unknown indication
     Dosage: 20 MILLIGRAM, QD (DAILY)
     Dates: start: 20250409, end: 202505
  2. AMNESTEEM [Suspect]
     Active Substance: ISOTRETINOIN
     Dosage: 20 MILLIGRAM, QD (DAILY)
     Route: 065
     Dates: start: 20250409, end: 202505
  3. AMNESTEEM [Suspect]
     Active Substance: ISOTRETINOIN
     Dosage: 20 MILLIGRAM, QD (DAILY)
     Route: 065
     Dates: start: 20250409, end: 202505
  4. AMNESTEEM [Suspect]
     Active Substance: ISOTRETINOIN
     Dosage: 20 MILLIGRAM, QD (DAILY)
     Dates: start: 20250409, end: 202505
  5. ISOTRETINOIN [Concomitant]
     Active Substance: ISOTRETINOIN
  6. ISOTRETINOIN [Concomitant]
     Active Substance: ISOTRETINOIN
     Route: 065
  7. ISOTRETINOIN [Concomitant]
     Active Substance: ISOTRETINOIN
     Route: 065
  8. ISOTRETINOIN [Concomitant]
     Active Substance: ISOTRETINOIN
  9. ISOTRETINOIN [Concomitant]
     Active Substance: ISOTRETINOIN
  10. ISOTRETINOIN [Concomitant]
     Active Substance: ISOTRETINOIN
     Route: 065
  11. ISOTRETINOIN [Concomitant]
     Active Substance: ISOTRETINOIN
     Route: 065
  12. ISOTRETINOIN [Concomitant]
     Active Substance: ISOTRETINOIN

REACTIONS (1)
  - Maternal exposure during pregnancy [Unknown]

NARRATIVE: CASE EVENT DATE: 20250509
